FAERS Safety Report 24420244 (Version 2)
Quarter: 2024Q4

REPORT INFORMATION
  Report Type: Spontaneous
  Country: CN (occurrence: CN)
  Receive Date: 20241010
  Receipt Date: 20241018
  Transmission Date: 20250114
  Serious: No
  Sender: ROCHE
  Company Number: CN-BoehringerIngelheim-2024-BI-007967

PATIENT
  Age: 53 Year
  Sex: Female
  Weight: 55.0 kg

DRUGS (2)
  1. ALTEPLASE [Suspect]
     Active Substance: ALTEPLASE
     Indication: Cerebral infarction
     Route: 042
     Dates: start: 20240127, end: 20240127
  2. ALTEPLASE [Suspect]
     Active Substance: ALTEPLASE
     Route: 042
     Dates: start: 20240127, end: 20240127

REACTIONS (2)
  - Epistaxis [Recovered/Resolved]
  - Prothrombin time abnormal [Recovered/Resolved]

NARRATIVE: CASE EVENT DATE: 20240127
